FAERS Safety Report 10033948 (Version 1)
Quarter: 2014Q1

REPORT INFORMATION
  Report Type: Spontaneous
  Country: US (occurrence: None)
  Receive Date: 20140324
  Receipt Date: 20140324
  Transmission Date: 20141002
  Serious: Yes (Hospitalization)
  Sender: FDA-Public Use
  Company Number: None

PATIENT
  Age: 8 Year
  Sex: Female
  Weight: 23 kg

DRUGS (5)
  1. CEFTRIAXONE [Suspect]
     Indication: PYREXIA
  2. CEFODOXIME PROXETI [Concomitant]
  3. ACLOFEN [Concomitant]
  4. AZIBEST [Concomitant]
  5. HIORA- GA [Concomitant]

REACTIONS (7)
  - Gingival hyperplasia [None]
  - Gingivitis [None]
  - Gingival bleeding [None]
  - Anaemia [None]
  - Thrombocytopenia [None]
  - Neutropenia [None]
  - Leukocytosis [None]
